FAERS Safety Report 16260482 (Version 1)
Quarter: 2019Q2

REPORT INFORMATION
  Report Type: Spontaneous
  Country: US (occurrence: US)
  Receive Date: 20190501
  Receipt Date: 20190501
  Transmission Date: 20190711
  Serious: Yes (Hospitalization)
  Sender: FDA-Public Use
  Company Number: US-JNJFOC-20190435767

PATIENT
  Sex: Male

DRUGS (2)
  1. BENADRYL ALLERGY [Suspect]
     Active Substance: DIPHENHYDRAMINE HYDROCHLORIDE
     Indication: MULTIPLE ALLERGIES
     Route: 065
  2. BENADRYL ORIGINAL STRENGTH ITCH STOPPING [Suspect]
     Active Substance: DIPHENHYDRAMINE HYDROCHLORIDE\ZINC ACETATE
     Indication: PRODUCT USED FOR UNKNOWN INDICATION
     Route: 065

REACTIONS (2)
  - Gastric disorder [Unknown]
  - Coronary artery occlusion [Recovering/Resolving]
